FAERS Safety Report 17395986 (Version 1)
Quarter: 2020Q1

REPORT INFORMATION
  Report Type: Spontaneous
  Country: FR (occurrence: FR)
  Receive Date: 20200210
  Receipt Date: 20200210
  Transmission Date: 20200409
  Serious: Yes (Hospitalization)
  Sender: FDA-Public Use
  Company Number: FR-MYLANLABS-2020M1013536

PATIENT
  Age: 77 Year
  Sex: Male

DRUGS (15)
  1. SMECTA [Concomitant]
     Active Substance: MONTMORILLONITE
     Indication: GASTROINTESTINAL MOTILITY DISORDER
     Dosage: 9 GRAM, QD (1-1-1)
     Route: 048
  2. LOPERAMIDE ARROW [Concomitant]
     Active Substance: LOPERAMIDE
     Indication: DIARRHOEA
     Dosage: 24 MILLIGRAM, QD (3-3-3-3)
     Route: 048
     Dates: start: 20190621
  3. ATHYMIL [Concomitant]
     Active Substance: MIANSERIN HYDROCHLORIDE
     Indication: DEPRESSION
     Dosage: 10 MILLIGRAM, QD (0-0-0-1)
     Route: 048
  4. PIPERACILLIN AND TAZOBACTAM [Suspect]
     Active Substance: PIPERACILLIN SODIUM\TAZOBACTAM SODIUM
     Indication: STAPHYLOCOCCAL INFECTION
     Dosage: 3 DOSAGE FORM, QD, 1-1-1
     Route: 042
     Dates: start: 20191011, end: 20191014
  5. VANCOMYCINE SANDOZ [Suspect]
     Active Substance: VANCOMYCIN
     Indication: STAPHYLOCOCCAL INFECTION
     Dosage: 1500 MILLIGRAM, QD
     Route: 042
     Dates: start: 20191011, end: 20191014
  6. EUROBIOL                           /00014701/ [Concomitant]
     Indication: PANCREATIC FAILURE
     Dosage: 75000 INTERNATIONAL UNIT, QD (CONC.12500 U/DOSE) 2-2-2
     Route: 048
     Dates: start: 20191007
  7. PANTOPRAZOLE [Concomitant]
     Active Substance: PANTOPRAZOLE
     Indication: GASTROINTESTINAL MOTILITY DISORDER
     Dosage: 40 MILLIGRAM, QD (0-0-1)
     Route: 048
  8. MODOPAR [Concomitant]
     Active Substance: BENSERAZIDE HYDROCHLORIDE\LEVODOPA
     Dosage: 250 MILLIGRAM, QD (1-1-0)
     Route: 048
  9. LOVENOX [Concomitant]
     Active Substance: ENOXAPARIN SODIUM
     Indication: THROMBOSIS PROPHYLAXIS
     Dosage: 4000 INTERNATIONAL UNIT, QD (1-0-0)
     Route: 058
     Dates: start: 20190920, end: 20191015
  10. CALCIDOSE                          /07357001/ [Concomitant]
     Active Substance: CALCIUM CARBONATE
     Indication: CALCIUM DEFICIENCY
     Dosage: 1000 MILLIGRAM, QD (1-0-1)
     Route: 048
     Dates: start: 20191001
  11. MYCAMINE [Suspect]
     Active Substance: MICAFUNGIN SODIUM
     Indication: SYSTEMIC CANDIDA
     Dosage: 100 MILLIGRAM, QD (0-1-0)
     Route: 042
     Dates: start: 20191012, end: 20191020
  12. CIRCADIN [Concomitant]
     Active Substance: MELATONIN
     Indication: SLEEP DISORDER
     Dosage: 2 MILLIGRAM, QD (0-0-0-1)
     Route: 048
  13. ZYMAD [Concomitant]
     Active Substance: CHOLECALCIFEROL
     Indication: VITAMIN SUPPLEMENTATION
     Dosage: 1 DOSAGE FORM (1 AMPOULE TOUS LES 15 JOURS)
     Route: 048
     Dates: start: 20190923
  14. MODOPAR [Concomitant]
     Active Substance: BENSERAZIDE HYDROCHLORIDE\LEVODOPA
     Indication: PARKINSON^S DISEASE
     Dosage: 125 MILLIGRAM, QD (0-0-1)
     Route: 048
  15. AZILECT [Concomitant]
     Active Substance: RASAGILINE MESYLATE
     Indication: PARKINSON^S DISEASE
     Dosage: 1 MILLIGRAM, QD (1-0-0)
     Route: 048

REACTIONS (2)
  - Acute kidney injury [Not Recovered/Not Resolved]
  - Tubulointerstitial nephritis [Not Recovered/Not Resolved]

NARRATIVE: CASE EVENT DATE: 20191013
